FAERS Safety Report 25866600 (Version 2)
Quarter: 2025Q4

REPORT INFORMATION
  Report Type: Spontaneous
  Country: US (occurrence: US)
  Receive Date: 20250930
  Receipt Date: 20251212
  Transmission Date: 20260118
  Serious: No
  Sender: BIOGEN
  Company Number: US-BIOGEN-2023BI01237563

PATIENT
  Age: 26 Year
  Sex: Male

DRUGS (5)
  1. SKYCLARYS [Suspect]
     Active Substance: OMAVELOXOLONE
     Indication: Friedreich^s ataxia
     Dates: start: 2023
  2. SKYCLARYS [Suspect]
     Active Substance: OMAVELOXOLONE
     Dosage: DOSAGE TEXT:50 MILLIGRAM, THREE CAPSULES DAILY
     Dates: start: 20230719
  3. SKYCLARYS [Suspect]
     Active Substance: OMAVELOXOLONE
     Dates: start: 20230719
  4. SKYCLARYS [Suspect]
     Active Substance: OMAVELOXOLONE
     Dates: start: 20230719
  5. SKYCLARYS [Suspect]
     Active Substance: OMAVELOXOLONE
     Dates: start: 20230717

REACTIONS (4)
  - Alanine aminotransferase increased [Unknown]
  - Muscle spasticity [Unknown]
  - Blood cholesterol increased [Unknown]
  - Incorrect dose administered [Unknown]

NARRATIVE: CASE EVENT DATE: 20230101
